FAERS Safety Report 15781866 (Version 8)
Quarter: 2019Q3

REPORT INFORMATION
  Report Type: Report from Study
  Country: CN (occurrence: CN)
  Receive Date: 20190102
  Receipt Date: 20190827
  Transmission Date: 20191004
  Serious: Yes (Hospitalization)
  Sender: FDA-Public Use
  Company Number: CN-ROCHE-2238197

PATIENT
  Age: 46 Year
  Sex: Female
  Weight: 58 kg

DRUGS (38)
  1. LANSOPRAZOLE. [Concomitant]
     Active Substance: LANSOPRAZOLE
     Route: 065
     Dates: start: 20190215, end: 20190215
  2. POTASSIUM CHLORIDE. [Concomitant]
     Active Substance: POTASSIUM CHLORIDE
     Route: 065
     Dates: start: 20181207, end: 20181210
  3. POTASSIUM CHLORIDE. [Concomitant]
     Active Substance: POTASSIUM CHLORIDE
     Route: 065
     Dates: start: 20190308, end: 20190308
  4. PACLITAXEL. [Suspect]
     Active Substance: PACLITAXEL
     Indication: OVARIAN CANCER
     Dosage: DATE OF MOST RECENT DOSE (255 MG) PRIOR TO EVENT: 06/DEC/2018?DATE OF MOST RECENT DOSE (270 MG) PRIO
     Route: 042
     Dates: start: 20181206
  5. DEXAMETHASONE ACETATE [Concomitant]
     Active Substance: DEXAMETHASONE ACETATE
     Indication: ALLERGY PROPHYLAXIS
     Route: 048
     Dates: start: 20181204, end: 20181206
  6. LANSOPRAZOLE. [Concomitant]
     Active Substance: LANSOPRAZOLE
     Route: 065
     Dates: start: 20181206, end: 20181206
  7. LANSOPRAZOLE. [Concomitant]
     Active Substance: LANSOPRAZOLE
     Route: 065
     Dates: start: 20190308, end: 20190308
  8. AZASETRON HYDROCHLORIDE [Concomitant]
     Active Substance: AZASETRON HYDROCHLORIDE
     Route: 065
     Dates: start: 20190308, end: 20190308
  9. SODIUM CHLORIDE. [Concomitant]
     Active Substance: SODIUM CHLORIDE
     Route: 065
     Dates: start: 20190215, end: 20190215
  10. INVERT SUGAR [Concomitant]
     Active Substance: INVERT SUGAR
     Route: 065
     Dates: start: 20181206, end: 20181206
  11. HIRUDOID [Concomitant]
     Active Substance: GLYCOSAMINOGLYCANS
     Indication: OEDEMA
     Route: 065
     Dates: start: 20181206, end: 20181208
  12. FERROUS SUCCINATE [Concomitant]
     Active Substance: FERROUS SUCCINATE
     Route: 065
     Dates: start: 20190126, end: 20190214
  13. ZOLPIDEM [Concomitant]
     Active Substance: ZOLPIDEM TARTRATE
     Route: 065
     Dates: start: 20181228, end: 20190102
  14. ATEZOLIZUMAB. [Suspect]
     Active Substance: ATEZOLIZUMAB
     Indication: OVARIAN CANCER
     Dosage: DATE OF MOST RECENT DOSE PRIOR TO EVENT: 06/DEC/2018?MOST RECENT DOSE ON 08/MAR/2019
     Route: 042
     Dates: start: 20181206
  15. CARBOPLATIN. [Suspect]
     Active Substance: CARBOPLATIN
     Indication: OVARIAN CANCER
     Dosage: AT A DOSE TO ACHIEVE A TARGET AREA UNDER THE CURVE (AUC) OF 6 MILLIGRAMS PER MILLILITER*MINUTE (MG/M
     Route: 042
     Dates: start: 20181206
  16. DEXAMETHASONE SODIUM PHOSPHATE. [Concomitant]
     Active Substance: DEXAMETHASONE SODIUM PHOSPHATE
     Route: 042
     Dates: start: 20181205, end: 20181205
  17. AMIFOSTINE. [Concomitant]
     Active Substance: AMIFOSTINE
     Route: 065
     Dates: start: 20190215, end: 20190215
  18. AZASETRON HYDROCHLORIDE [Concomitant]
     Active Substance: AZASETRON HYDROCHLORIDE
     Route: 065
     Dates: start: 20181206, end: 20181206
  19. SODIUM CHLORIDE. [Concomitant]
     Active Substance: SODIUM CHLORIDE
     Route: 065
     Dates: start: 20181206, end: 20181206
  20. SODIUM CHLORIDE. [Concomitant]
     Active Substance: SODIUM CHLORIDE
     Route: 065
     Dates: start: 20190308, end: 20190308
  21. GLUTATHIONE [Concomitant]
     Active Substance: GLUTATHIONE
     Route: 065
     Dates: start: 20190308, end: 20190308
  22. DEXAMETHASONE ACETATE [Concomitant]
     Active Substance: DEXAMETHASONE ACETATE
     Route: 048
     Dates: start: 20181230, end: 20181231
  23. DEXAMETHASONE ACETATE [Concomitant]
     Active Substance: DEXAMETHASONE ACETATE
     Route: 048
     Dates: start: 20190214, end: 20190215
  24. DEXAMETHASONE ACETATE [Concomitant]
     Active Substance: DEXAMETHASONE ACETATE
     Route: 048
     Dates: start: 20190307, end: 20190308
  25. DEXAMETHASONE SODIUM PHOSPHATE. [Concomitant]
     Active Substance: DEXAMETHASONE SODIUM PHOSPHATE
     Route: 042
     Dates: start: 20181206, end: 20181206
  26. AZASETRON HYDROCHLORIDE [Concomitant]
     Active Substance: AZASETRON HYDROCHLORIDE
     Route: 065
     Dates: start: 20190215, end: 20190215
  27. GLUTATHIONE [Concomitant]
     Active Substance: GLUTATHIONE
     Route: 065
     Dates: start: 20190215, end: 20190215
  28. LIDOCAINE HYDROCHLORIDE. [Concomitant]
     Active Substance: LIDOCAINE HYDROCHLORIDE
     Route: 065
     Dates: start: 20181206, end: 20181206
  29. CALCIUM GLUCONATE. [Concomitant]
     Active Substance: CALCIUM GLUCONATE
     Indication: MINERAL SUPPLEMENTATION
     Route: 065
     Dates: start: 20181207, end: 20181207
  30. AMIFOSTINE. [Concomitant]
     Active Substance: AMIFOSTINE
     Route: 065
     Dates: start: 20181206, end: 20181206
  31. FERROUS SUCCINATE [Concomitant]
     Active Substance: FERROUS SUCCINATE
     Indication: ANAEMIA
     Route: 065
     Dates: start: 20181207, end: 20190123
  32. POVIDONE-IODINE. [Concomitant]
     Active Substance: POVIDONE-IODINE
     Route: 065
     Dates: start: 20181206, end: 20181206
  33. BEVACIZUMAB. [Suspect]
     Active Substance: BEVACIZUMAB
     Indication: OVARIAN CANCER
     Dosage: MOST RECENT DOSE (840 MG) ON 08/MAR/2019
     Route: 042
     Dates: start: 20181231
  34. AMIFOSTINE. [Concomitant]
     Active Substance: AMIFOSTINE
     Route: 065
     Dates: start: 20190308, end: 20190308
  35. GLUTATHIONE [Concomitant]
     Active Substance: GLUTATHIONE
     Route: 065
     Dates: start: 20181206, end: 20181206
  36. POTASSIUM CHLORIDE. [Concomitant]
     Active Substance: POTASSIUM CHLORIDE
     Route: 065
     Dates: start: 20190215, end: 20190215
  37. GLUTATHIONE [Concomitant]
     Active Substance: GLUTATHIONE
     Route: 065
     Dates: start: 20181207, end: 20181210
  38. MAGNESIUM SULFATE. [Concomitant]
     Active Substance: MAGNESIUM SULFATE
     Indication: OEDEMA
     Route: 065
     Dates: start: 20181205, end: 20181208

REACTIONS (2)
  - Thrombocytopenia [Recovered/Resolved]
  - Thrombocytopenia [Not Recovered/Not Resolved]

NARRATIVE: CASE EVENT DATE: 20181224
